FAERS Safety Report 7129682-0 (Version None)
Quarter: 2010Q4

REPORT INFORMATION
  Report Type: 
  Country: None (occurrence: None)
  Receive Date: 20101130
  Receipt Date: 20101124
  Transmission Date: 20110411
  Serious: Yes (Other)
  Sender: FDA-Public Use
  Company Number: AU-PFIZER INC-2010157243

PATIENT
  Age: 72 Year
  Sex: Female

DRUGS (6)
  1. CHAMPIX [Suspect]
     Indication: SMOKING CESSATION THERAPY
     Dosage: UNK
     Dates: start: 20100503, end: 20100803
  2. BUPRENORPHINE [Concomitant]
     Dosage: UNK
  3. PANADOL [Concomitant]
     Dosage: UNK
  4. PLAQUENIL [Concomitant]
     Dosage: UNK
  5. SERETIDE [Concomitant]
     Dosage: UNK
  6. VENTOLIN [Concomitant]
     Dosage: UNK

REACTIONS (5)
  - DEPRESSION [None]
  - GAIT DISTURBANCE [None]
  - GRIEF REACTION [None]
  - MALAISE [None]
  - PAIN [None]
